FAERS Safety Report 19250273 (Version 2)
Quarter: 2021Q2

REPORT INFORMATION
  Report Type: Spontaneous
  Country: US (occurrence: US)
  Receive Date: 20210513
  Receipt Date: 20210615
  Transmission Date: 20210717
  Serious: Yes (Hospitalization, Other)
  Sender: FDA-Public Use
  Company Number: US-CELLTRION INC.-2021US003647

PATIENT

DRUGS (7)
  1. INFLECTRA [Suspect]
     Active Substance: INFLIXIMAB-DYYB
     Indication: VASCULITIS
     Dosage: 5 MG/KG (500MG) INDUCTION WEEK 0,2,6
     Route: 042
     Dates: start: 20200323
  2. PREDNISONE. [Concomitant]
     Active Substance: PREDNISONE
     Indication: AUTOIMMUNE HEPATITIS
     Dosage: 10 MG, DAILY
  3. FOLIC ACID. [Concomitant]
     Active Substance: FOLIC ACID
     Dosage: UNK
  4. INFLECTRA [Suspect]
     Active Substance: INFLIXIMAB-DYYB
     Dosage: 5 MG/KG (500MG) INDUCTION WEEK 0,2,6
     Route: 042
     Dates: start: 20200418, end: 20200418
  5. MTX [METHOTREXATE] [Concomitant]
     Active Substance: METHOTREXATE SODIUM
     Dosage: UNK
  6. IMURAN [Concomitant]
     Active Substance: AZATHIOPRINE
     Indication: SARCOIDOSIS
     Dosage: 75 MG/DAY
     Dates: start: 201904
  7. INFLECTRA [Suspect]
     Active Substance: INFLIXIMAB-DYYB
     Indication: CUTANEOUS SARCOIDOSIS
     Dosage: 5 MG/KG (500MG) INDUCTION WEEK 0,2,6
     Route: 042
     Dates: start: 20200308

REACTIONS (4)
  - Autoimmune hepatitis [Unknown]
  - Off label use [Unknown]
  - Hepatic failure [Recovered/Resolved]
  - Inappropriate schedule of product administration [Unknown]

NARRATIVE: CASE EVENT DATE: 20200418
